FAERS Safety Report 15090780 (Version 1)
Quarter: 2018Q2

REPORT INFORMATION
  Report Type: Spontaneous
  Country: US (occurrence: US)
  Receive Date: 20180608
  Receipt Date: 20180608
  Transmission Date: 20180711
  Serious: No
  Sender: FDA-Public Use
  Company Number: None

PATIENT
  Age: 81 Year
  Sex: Female

DRUGS (1)
  1. CAPECITABINE TAB 500MG [Suspect]
     Active Substance: CAPECITABINE
     Route: 048
     Dates: start: 20180516, end: 20180608

REACTIONS (4)
  - Fatigue [None]
  - Jugular vein thrombosis [None]
  - Weight decreased [None]
  - Decreased appetite [None]

NARRATIVE: CASE EVENT DATE: 20180604
